FAERS Safety Report 5159899-6 (Version None)
Quarter: 2006Q4

REPORT INFORMATION
  Report Type: 
  Country: None (occurrence: None)
  Receive Date: 20061129
  Receipt Date: 20060412
  Transmission Date: 20070319
  Serious: No
  Sender: FDA-Public Use
  Company Number: 2006-01413

PATIENT
  Age: 55 Year
  Sex: Female

DRUGS (2)
  1. BUPROPION HCL [Suspect]
     Dosage: 150MG TWICE PER DAY
     Route: 048
     Dates: start: 20060315
  2. NICOTINE POLACRILEX [Suspect]
     Route: 002
     Dates: start: 20060403

REACTIONS (5)
  - DEPRESSION [None]
  - MUSCLE SPASMS [None]
  - NICOTINE DEPENDENCE [None]
  - RASH PRURITIC [None]
  - URTICARIA [None]
